FAERS Safety Report 25218706 (Version 1)
Quarter: 2025Q2

REPORT INFORMATION
  Report Type: Report from Study
  Country: US (occurrence: US)
  Receive Date: 20250421
  Receipt Date: 20250421
  Transmission Date: 20250717
  Serious: Yes (Other)
  Sender: ALEXION PHARMACEUTICALS
  Company Number: US-AstraZeneca-CH-00849167A

PATIENT

DRUGS (1)
  1. ACALABRUTINIB [Suspect]
     Active Substance: ACALABRUTINIB
     Indication: Chronic lymphocytic leukaemia
     Dosage: 100 MILLIGRAM, BID

REACTIONS (9)
  - Product dose omission issue [Unknown]
  - Dyspnoea [Unknown]
  - Chills [Unknown]
  - Tremor [Unknown]
  - Body temperature abnormal [Unknown]
  - Dehydration [Unknown]
  - Dizziness [Unknown]
  - Ventricular extrasystoles [Unknown]
  - Immune system disorder [Unknown]
